FAERS Safety Report 21947234 (Version 2)
Quarter: 2023Q1

REPORT INFORMATION
  Report Type: Report from Study
  Country: DE (occurrence: DE)
  Receive Date: 20230202
  Receipt Date: 20230221
  Transmission Date: 20230418
  Serious: Yes (Hospitalization)
  Sender: FDA-Public Use
  Company Number: DE-REGENERON PHARMACEUTICALS, INC.-2023-021498

PATIENT
  Age: 62 Month
  Sex: Female

DRUGS (13)
  1. DUPILUMAB [Suspect]
     Active Substance: DUPILUMAB
     Indication: Dermatitis atopic
     Dosage: 60 MG, SINGLE, LOADING DOSE
     Route: 058
     Dates: start: 20190709, end: 20190709
  2. DUPILUMAB [Suspect]
     Active Substance: DUPILUMAB
     Dosage: 60 MG, WEEKLY, MAINTENANCE DOSE
     Route: 058
     Dates: start: 20190724, end: 20191022
  3. DUPILUMAB [Suspect]
     Active Substance: DUPILUMAB
     Dosage: 66 MG, WEEKLY, MAINTENANCE DOSE
     Route: 058
     Dates: start: 20191031, end: 20200116
  4. DUPILUMAB [Suspect]
     Active Substance: DUPILUMAB
     Dosage: 72 MG, WEEKLY, MAINTENANCE DOSE
     Route: 058
     Dates: start: 20200129, end: 20200408
  5. DUPILUMAB [Suspect]
     Active Substance: DUPILUMAB
     Dosage: 78 MG, WEEKLY, MAINTENANCE DOSE
     Route: 058
     Dates: start: 20200414, end: 20200922
  6. DUPILUMAB [Suspect]
     Active Substance: DUPILUMAB
     Dosage: 84 MG, WEEKLY, MAINTENANCE DOSE
     Route: 058
     Dates: start: 20200929, end: 20201216
  7. DUPILUMAB [Suspect]
     Active Substance: DUPILUMAB
     Dosage: 300 MG, Q4W, MAINTENANCE DOSE
     Route: 058
     Dates: start: 20201222, end: 20210901
  8. DUPILUMAB [Suspect]
     Active Substance: DUPILUMAB
     Dosage: 150 MG, SINGLE, MAINTENANCE DOSE
     Route: 058
     Dates: start: 20211227, end: 20211227
  9. DUPILUMAB [Suspect]
     Active Substance: DUPILUMAB
     Dosage: 300 MG, Q4W, MAINTENANCE DOSE
     Route: 058
     Dates: start: 20220119, end: 20221031
  10. DUPILUMAB [Suspect]
     Active Substance: DUPILUMAB
     Dosage: 300 MG, Q4W, 3. LAST DOSE PRIOR TO EVENT ONSET
     Route: 058
     Dates: start: 20221221, end: 20221221
  11. IBUPROFEN [Concomitant]
     Active Substance: IBUPROFEN
     Indication: Nasopharyngitis
     Dosage: UNK
  12. CEFPODOXIME [Concomitant]
     Active Substance: CEFPODOXIME
     Indication: Urinary tract infection
     Dosage: UNK
  13. INFECTOCILLIN [BENZYLPENICILLIN SODIUM] [Concomitant]
     Indication: Scarlet fever
     Dosage: UNK

REACTIONS (1)
  - Drug hypersensitivity [Recovered/Resolved]

NARRATIVE: CASE EVENT DATE: 20230117
